FAERS Safety Report 9510590 (Version 1)
Quarter: 2013Q3

REPORT INFORMATION
  Report Type: Spontaneous
  Country: FR (occurrence: FR)
  Receive Date: 20130909
  Receipt Date: 20130909
  Transmission Date: 20140515
  Serious: Yes (Disabling)
  Sender: FDA-Public Use
  Company Number: FR-PFIZER INC-2013254014

PATIENT
  Age: 52 Year
  Sex: Female

DRUGS (5)
  1. TAHOR [Suspect]
     Dosage: 1 DF, DAILY
     Route: 048
     Dates: start: 2008
  2. AGYRAX [Suspect]
     Indication: MENIERE^S DISEASE
     Dosage: 1 DF, 3 TIMES DAILY
     Route: 048
     Dates: start: 2008
  3. LECTIL [Suspect]
     Indication: MENIERE^S DISEASE
     Dosage: 1 DF, TWICE DAILY
     Dates: start: 2008
  4. NIVAQUINE [Concomitant]
     Indication: RAYNAUD^S PHENOMENON
     Dosage: UNK
     Dates: start: 2010
  5. CORTANCYL [Concomitant]
     Indication: RAYNAUD^S PHENOMENON
     Dosage: 5 MG, DAILY
     Dates: start: 2010

REACTIONS (1)
  - Photodermatosis [Not Recovered/Not Resolved]
